FAERS Safety Report 9919902 (Version 3)
Quarter: 2014Q1

REPORT INFORMATION
  Report Type: Spontaneous
  Country: NO (occurrence: NO)
  Receive Date: 20140224
  Receipt Date: 20140323
  Transmission Date: 20141002
  Serious: Yes (Disabling)
  Sender: FDA-Public Use
  Company Number: NO-009507513-1401NOR009773

PATIENT
  Age: 52 Year
  Sex: Male

DRUGS (3)
  1. EZETROL [Suspect]
     Indication: HYPERLIPIDAEMIA
     Dosage: UNK
     Route: 048
     Dates: start: 20120627
  2. EZETROL [Suspect]
     Dosage: UNK, QPM
     Route: 048
  3. ALBYL-E [Concomitant]

REACTIONS (4)
  - Visual acuity reduced transiently [Recovered/Resolved]
  - Palmar erythema [Recovered/Resolved]
  - Rash [Recovered/Resolved]
  - Headache [Recovered/Resolved]
